FAERS Safety Report 5593156-9 (Version None)
Quarter: 2008Q1

REPORT INFORMATION
  Report Type: 
  Country: None (occurrence: None)
  Receive Date: 20080114
  Receipt Date: 20080114
  Transmission Date: 20080703
  Serious: Yes (Death, Life-Threatening, Hospitalization, Disabling)
  Sender: FDA-Public Use
  Company Number: None

PATIENT
  Age: 69 Year
  Sex: Female
  Weight: 76.2043 kg

DRUGS (8)
  1. METHOTREXATE [Suspect]
     Indication: ARTHRITIS
     Dosage: .8ML WEEKLY SQ
     Route: 058
     Dates: start: 20070623, end: 20070803
  2. LOTREL [Concomitant]
  3. HIDROCHLOROTHIAZIDE [Concomitant]
  4. RELAFEN [Concomitant]
  5. LOVASTATIN [Concomitant]
  6. DOXEPIN HCL [Concomitant]
  7. TRIFLUOPERAZINE [Concomitant]
  8. ALEVE [Concomitant]

REACTIONS (15)
  - ALOPECIA [None]
  - ANAEMIA [None]
  - ANOREXIA [None]
  - CONSTIPATION [None]
  - HEPATITIS [None]
  - HYPOTENSION [None]
  - INFLAMMATION [None]
  - INFLUENZA [None]
  - LUNG DISORDER [None]
  - PAIN [None]
  - PHARYNGOLARYNGEAL PAIN [None]
  - PNEUMONIA [None]
  - RENAL FAILURE ACUTE [None]
  - URINARY TRACT INFECTION [None]
  - URINARY TRACT INFLAMMATION [None]
